FAERS Safety Report 8964201 (Version 3)
Quarter: 2013Q1

REPORT INFORMATION
  Report Type: Report from Study
  Country: US (occurrence: US)
  Receive Date: 20121214
  Receipt Date: 20130108
  Transmission Date: 20140127
  Serious: No
  Sender: FDA-Public Use
  Company Number: US-009507513-1107USA00184

PATIENT
  Age: 37 Year
  Sex: Female

DRUGS (5)
  1. ISENTRESS [Suspect]
     Indication: HIV INFECTION
     Dosage: 800 MG, QD
     Route: 048
     Dates: end: 20110810
  2. TRUVADA [Suspect]
     Indication: HIV INFECTION
     Dosage: 1 DF, QD
     Route: 048
     Dates: end: 20110810
  3. LOPINAVIR (+) RITONAVIR [Suspect]
     Indication: HIV INFECTION
     Dosage: 4 DF, QD
     Route: 048
     Dates: start: 20110811, end: 20120513
  4. TRIZIVIR [Suspect]
     Indication: HIV INFECTION
     Dosage: 2 DF, QD
     Route: 048
     Dates: start: 20110811, end: 20120513
  5. ATRIPLA [Suspect]
     Indication: HIV INFECTION
     Dosage: 1 DF, QD
     Route: 048
     Dates: start: 20120514

REACTIONS (2)
  - Foetal disorder [Recovered/Resolved]
  - Exposure during pregnancy [Recovered/Resolved]
